FAERS Safety Report 6096920-5 (Version None)
Quarter: 2009Q1

REPORT INFORMATION
  Report Type: 
  Country: None (occurrence: None)
  Receive Date: 20090223
  Receipt Date: 20080121
  Transmission Date: 20090719
  Serious: Yes (Life-Threatening, Hospitalization)
  Sender: FDA-Public Use
  Company Number: WAES 0801USA04549

PATIENT
  Age: 88 Year
  Sex: Male

DRUGS (6)
  1. ZOCOR [Suspect]
     Indication: HYPERLIPIDAEMIA
     Dosage: PO
     Route: 048
     Dates: start: 19980101, end: 20071124
  2. COLCHICINE [Suspect]
     Indication: GOUT
  3. COREG [Concomitant]
  4. PERSANTINE [Concomitant]
  5. ALLOPURINOL [Concomitant]
  6. PREDNISONE [Concomitant]

REACTIONS (1)
  - RHABDOMYOLYSIS [None]
